FAERS Safety Report 7889876-3 (Version None)
Quarter: 2011Q4

REPORT INFORMATION
  Report Type: 
  Country: None (occurrence: None)
  Receive Date: 20111103
  Receipt Date: 20111024
  Transmission Date: 20120403
  Serious: Yes (Hospitalization)
  Sender: FDA-Public Use
  Company Number: US-GLAXOSMITHKLINE-B0752303A

PATIENT
  Age: 77 Year
  Sex: Male
  Weight: 105.5 kg

DRUGS (16)
  1. AVANDIA [Suspect]
     Indication: DIABETES MELLITUS
     Dosage: 8MG PER DAY
     Route: 048
     Dates: start: 20010101
  2. GLYBURIDE [Concomitant]
  3. PLAVIX [Concomitant]
  4. SOMA [Concomitant]
  5. NORVASC [Concomitant]
  6. CLONAZEPAM [Concomitant]
  7. FUROSEMIDE [Concomitant]
  8. LISINOPRIL [Concomitant]
  9. NORCO [Concomitant]
  10. ACIPHEX [Concomitant]
  11. ASPIRIN [Concomitant]
  12. SKELAXIN [Concomitant]
  13. JANUVIA [Concomitant]
  14. COREG [Concomitant]
  15. LIPITOR [Concomitant]
  16. LASIX [Concomitant]

REACTIONS (7)
  - INFECTION [None]
  - FLUID RETENTION [None]
  - ISCHAEMIC CARDIOMYOPATHY [None]
  - LUNG DISORDER [None]
  - PNEUMONIA BACTERIAL [None]
  - CARDIAC FAILURE CONGESTIVE [None]
  - CORONARY ARTERY DISEASE [None]
